FAERS Safety Report 23501889 (Version 1)
Quarter: 2024Q1

REPORT INFORMATION
  Report Type: Spontaneous
  Country: KR (occurrence: KR)
  Receive Date: 20240208
  Receipt Date: 20240208
  Transmission Date: 20240410
  Serious: No
  Sender: FDA-Public Use
  Company Number: KR-PFIZER INC-PV202400018387

PATIENT
  Sex: Female

DRUGS (1)
  1. PAXLOVID [Suspect]
     Active Substance: NIRMATRELVIR\RITONAVIR
     Indication: COVID-19 treatment
     Dosage: 3 DF, 3X/DAY
     Route: 048
     Dates: start: 20240206

REACTIONS (4)
  - Intentional product misuse [Not Recovered/Not Resolved]
  - Overdose [Not Recovered/Not Resolved]
  - Dizziness [Not Recovered/Not Resolved]
  - Respiration abnormal [Not Recovered/Not Resolved]

NARRATIVE: CASE EVENT DATE: 20240201
